FAERS Safety Report 22646773 (Version 1)
Quarter: 2023Q2

REPORT INFORMATION
  Report Type: Report from Study
  Country: CA (occurrence: CA)
  Receive Date: 20230627
  Receipt Date: 20230627
  Transmission Date: 20230722
  Serious: Yes (Other)
  Sender: FDA-Public Use
  Company Number: CA-HLS-202301490

PATIENT
  Age: 24 Year
  Sex: Male
  Weight: 98 kg

DRUGS (3)
  1. CLOZARIL [Suspect]
     Active Substance: CLOZAPINE
     Indication: Product used for unknown indication
     Dosage: 150MG AND 200MG AT BEDTIME ?RESTARTED ON 05-MAY-2023 : 300MG MAX DOSE DIVIDED BID
     Route: 048
     Dates: start: 20221220
  2. METHADONE [Concomitant]
     Active Substance: METHADONE HYDROCHLORIDE
     Indication: Product used for unknown indication
     Route: 065
  3. ABILIFY MAINTENA [Concomitant]
     Active Substance: ARIPIPRAZOLE
     Indication: Product used for unknown indication
     Dosage: 400MG , EVERY 4 WEEKS (LONG ACTING INJECTION)
     Route: 065
     Dates: start: 20230224

REACTIONS (15)
  - Blood pressure systolic increased [Recovered/Resolved]
  - Blood pressure diastolic decreased [Not Recovered/Not Resolved]
  - Blood pressure systolic decreased [Not Recovered/Not Resolved]
  - Total cholesterol/HDL ratio decreased [Unknown]
  - Drooling [Not Recovered/Not Resolved]
  - Tachycardia [Recovered/Resolved]
  - Eosinophil count increased [Unknown]
  - Non-high-density lipoprotein cholesterol increased [Unknown]
  - Electrocardiogram ST-T segment abnormal [Unknown]
  - Sedation [Unknown]
  - Heart rate increased [Not Recovered/Not Resolved]
  - Sinus tachycardia [Unknown]
  - Electrocardiogram ST-T change [Unknown]
  - Blood triglycerides increased [Unknown]
  - White blood cell count increased [Unknown]

NARRATIVE: CASE EVENT DATE: 20230315
